FAERS Safety Report 6375443-X (Version None)
Quarter: 2009Q3

REPORT INFORMATION
  Report Type: 
  Country: None (occurrence: None)
  Receive Date: 20090924
  Receipt Date: 20090911
  Transmission Date: 20100115
  Serious: Yes (Hospitalization)
  Sender: FDA-Public Use
  Company Number: GB-JNJFOC-20090906428

PATIENT
  Age: 88 Year
  Sex: Female

DRUGS (7)
  1. TRAMADOL HYDROCHLORIDE [Suspect]
     Indication: DRUG USE FOR UNKNOWN INDICATION
     Route: 065
  2. ATENOLOL [Concomitant]
  3. BENDROFLUMETHIAZIDE [Concomitant]
  4. ENALAPRIL MALEATE [Concomitant]
  5. FELODIPINE [Concomitant]
  6. OMEPRAZOLE [Concomitant]
  7. SIMVASTATIN [Concomitant]

REACTIONS (2)
  - CONFUSIONAL STATE [None]
  - FALL [None]
